FAERS Safety Report 8030027-2 (Version None)
Quarter: 2012Q1

REPORT INFORMATION
  Report Type: 
  Country: None (occurrence: None)
  Receive Date: 20120109
  Receipt Date: 20120102
  Transmission Date: 20120608
  Serious: Yes (Death)
  Sender: FDA-Public Use
  Company Number: DE-JNJFOC-20111207177

PATIENT
  Sex: Male
  Weight: 124 kg

DRUGS (5)
  1. PALIPERIDONE [Suspect]
     Indication: SCHIZOPHRENIA, RESIDUAL TYPE
     Route: 030
     Dates: start: 20110720, end: 20111114
  2. PALIPERIDONE [Suspect]
     Indication: SCHIZOPHRENIA, PARANOID TYPE
     Route: 030
     Dates: start: 20110720, end: 20111114
  3. SEROQUEL [Concomitant]
     Indication: SCHIZOPHRENIA, RESIDUAL TYPE
     Route: 048
     Dates: start: 20110620, end: 20111017
  4. TRIMIPRAMINE MALEATE [Concomitant]
     Indication: SLEEP DISORDER
     Route: 048
     Dates: start: 20110620, end: 20111017
  5. SEROQUEL [Concomitant]
     Indication: SCHIZOPHRENIA, PARANOID TYPE
     Route: 048
     Dates: start: 20110620, end: 20111017

REACTIONS (2)
  - MYOCARDIAL INFARCTION [None]
  - MALAISE [None]
